FAERS Safety Report 7027223-X (Version None)
Quarter: 2010Q3

REPORT INFORMATION
  Report Type: 
  Country: None (occurrence: None)
  Receive Date: 20100930
  Receipt Date: 20100914
  Transmission Date: 20110219
  Serious: Yes (Death, Hospitalization)
  Sender: FDA-Public Use
  Company Number: 2010003902

PATIENT
  Age: 67 Year
  Sex: Female
  Weight: 46.4 kg

DRUGS (9)
  1. ERLOTINIB HYDROCHLORIDE [Suspect]
     Indication: NON-SMALL CELL LUNG CANCER
     Dosage: 150 MG, QD, ORAL
     Route: 048
     Dates: start: 20081024, end: 20081218
  2. MAGNESIUM HYDROXIDE TAB [Concomitant]
  3. LANSOPRAZOLE [Concomitant]
  4. DEPAS (ETIZOLAM) [Concomitant]
  5. NOVAMIN (PROCHLORPERAZINE) [Concomitant]
  6. CLEANAL [Concomitant]
  7. AMITRIPTYLINE HCL [Concomitant]
  8. OXYCONTIN [Concomitant]
  9. LOXONIN(LOXOPROFEN SODIUM) [Concomitant]

REACTIONS (8)
  - CERVIX CANCER METASTATIC [None]
  - INTERSTITIAL LUNG DISEASE [None]
  - LYMPHANGIOMA [None]
  - MALIGNANT NEOPLASM PROGRESSION [None]
  - NON-SMALL CELL LUNG CANCER [None]
  - PLEURAL EFFUSION [None]
  - PNEUMONIA [None]
  - PSEUDOMONAS INFECTION [None]
